FAERS Safety Report 8049568-7 (Version None)
Quarter: 2012Q1

REPORT INFORMATION
  Report Type: 
  Country: None (occurrence: None)
  Receive Date: 20120117
  Receipt Date: 20120109
  Transmission Date: 20120608
  Serious: Yes (Other)
  Sender: FDA-Public Use
  Company Number: US-SANOFI-AVENTIS-2012SA001986

PATIENT
  Age: 74 Year
  Sex: Female

DRUGS (7)
  1. ALLEGRA-D 12 HOUR [Suspect]
     Dates: start: 20111124, end: 20111126
  2. ALL OTHER THERAPEUTIC PRODUCTS [Concomitant]
  3. ALLEGRA-D 12 HOUR [Suspect]
  4. NEXIUM [Concomitant]
  5. CELEBREX [Concomitant]
  6. SINGULAIR [Concomitant]
  7. ASPIRIN [Concomitant]

REACTIONS (2)
  - DIARRHOEA [None]
  - COLITIS ULCERATIVE [None]
